FAERS Safety Report 8215945-4 (Version None)
Quarter: 2012Q1

REPORT INFORMATION
  Report Type: 
  Country: None (occurrence: None)
  Receive Date: 20120316
  Receipt Date: 20120308
  Transmission Date: 20120608
  Serious: Yes (Hospitalization)
  Sender: FDA-Public Use
  Company Number: US-BAYER-2011-080816

PATIENT
  Age: 38 Year
  Sex: Female

DRUGS (3)
  1. AMOX TR-POTASSIUM CLAVULANATE [Concomitant]
     Dosage: 875-125 MG
     Route: 048
  2. YASMIN [Suspect]
     Dosage: UNK
     Dates: start: 20080428, end: 20091113
  3. LOPERAMIDE HCL [Concomitant]
     Indication: DIARRHOEA
     Dosage: 2 MG, 2 IMMEDIATELY THEN 1 AFTER EACH LOOSE STOOL
     Route: 048

REACTIONS (6)
  - EMOTIONAL DISTRESS [None]
  - ANHEDONIA [None]
  - PAIN [None]
  - PULMONARY EMBOLISM [None]
  - ANXIETY [None]
  - INJURY [None]
